FAERS Safety Report 5508465-9 (Version None)
Quarter: 2007Q4

REPORT INFORMATION
  Report Type: 
  Country: None (occurrence: None)
  Receive Date: 20071031
  Receipt Date: 20070823
  Transmission Date: 20080405
  Serious: No
  Sender: FDA-Public Use
  Company Number: 200712867BWH

PATIENT
  Age: 55 Year
  Sex: Male

DRUGS (5)
  1. NEXAVAR [Suspect]
     Indication: HEPATIC CANCER METASTATIC
     Dosage: 400 MG, BID, ORAL ; 400 MG, QD, ORAL
     Route: 048
     Dates: start: 20070801
  2. NEXAVAR [Suspect]
     Indication: METASTASES TO LUNG
     Dosage: 400 MG, BID, ORAL ; 400 MG, QD, ORAL
     Route: 048
     Dates: start: 20070801
  3. NEXAVAR [Suspect]
     Indication: HEPATIC CANCER METASTATIC
     Dosage: 400 MG, BID, ORAL ; 400 MG, QD, ORAL
     Route: 048
     Dates: start: 20070801
  4. NEXAVAR [Suspect]
     Indication: METASTASES TO LUNG
     Dosage: 400 MG, BID, ORAL ; 400 MG, QD, ORAL
     Route: 048
     Dates: start: 20070801
  5. LIPITOR [Concomitant]

REACTIONS (3)
  - GAIT DISTURBANCE [None]
  - HYPERKERATOSIS [None]
  - PALMAR-PLANTAR ERYTHRODYSAESTHESIA SYNDROME [None]
